FAERS Safety Report 4684176-7 (Version None)
Quarter: 2005Q2

REPORT INFORMATION
  Report Type: 
  Country: None (occurrence: None)
  Receive Date: 20050607
  Receipt Date: 20050201
  Transmission Date: 20051028
  Serious: Yes (Other)
  Sender: FDA-Public Use
  Company Number: 392676

PATIENT
  Age: 65 Year
  Sex: Male

DRUGS (1)
  1. DILATREND [Suspect]
     Indication: ESSENTIAL HYPERTENSION
     Dosage: 12.5G PER DAY
     Route: 048
     Dates: start: 20040615, end: 20041215

REACTIONS (2)
  - MACULAR DEGENERATION [None]
  - RETINAL OEDEMA [None]
